FAERS Safety Report 6144791-0 (Version None)
Quarter: 2009Q2

REPORT INFORMATION
  Report Type: 
  Country: None (occurrence: None)
  Receive Date: 20090402
  Receipt Date: 20081201
  Transmission Date: 20091009
  Serious: No
  Sender: FDA-Public Use
  Company Number: 1000004660

PATIENT
  Age: 85 Year
  Sex: Male

DRUGS (8)
  1. BYSTOLIC [Suspect]
     Indication: HYPERTENSION
     Dosage: 5 MG, (5 MG, 1 IN 1 D), ORAL
     Route: 048
     Dates: start: 20080601
  2. NORVASC [Concomitant]
  3. COZAAR (LOSARTAN POTASSIUM) (LOSARTAN POTASSIUM) [Concomitant]
  4. LASIX [Concomitant]
  5. BABY ASPIRIN (ACETYLSALICYLIC ACID) (ACETYLSALICYLIC ACID) [Concomitant]
  6. LIPITOR (ATORVASTATIN CALCIUM) (ATORVASTATIN CALCIUM) [Concomitant]
  7. SYNTHROID (LEVOTHYROXINE SODIUM) (LEVOTHYROXINE SODIUM) [Concomitant]
  8. AVODART (DUTASTERIDE) (DUTASTERIDE) [Concomitant]

REACTIONS (2)
  - ARTHRALGIA [None]
  - MYALGIA [None]
